FAERS Safety Report 7889539-4 (Version None)
Quarter: 2011Q4

REPORT INFORMATION
  Report Type: 
  Country: None (occurrence: None)
  Receive Date: 20111103
  Receipt Date: 20101020
  Transmission Date: 20120403
  Serious: No
  Sender: FDA-Public Use
  Company Number: US-BRISTOL-MYERS SQUIBB COMPANY-15312515

PATIENT
  Age: 53 Year
  Sex: Female
  Weight: 54 kg

DRUGS (1)
  1. KENALOG-40 [Suspect]
     Dosage: 1 DF: 1 INJECTION KENALOG 40

REACTIONS (1)
  - INJECTION SITE ATROPHY [None]
